FAERS Safety Report 4687487-4 (Version None)
Quarter: 2005Q2

REPORT INFORMATION
  Report Type: 
  Country: None (occurrence: None)
  Receive Date: 20050608
  Receipt Date: 20050608
  Transmission Date: 20051028
  Serious: Yes (Death, Hospitalization)
  Sender: FDA-Public Use
  Company Number: None

PATIENT
  Age: 79 Year
  Sex: Male

DRUGS (8)
  1. CLOPIDOGREL   75MG       BRISTOL MEYERS SQUIBB [Suspect]
     Indication: THROMBOSIS PROPHYLAXIS
     Dosage: 75MG   DAILY   ORAL
     Route: 048
     Dates: start: 20050308, end: 20050320
  2. ASPIRIN [Suspect]
     Indication: THROMBOSIS PROPHYLAXIS
     Dosage: 81MG   DAILY   ORAL
     Route: 048
     Dates: start: 20050308, end: 20050320
  3. LEVOTHYROXINE SODIUM [Concomitant]
  4. GEMFIBROZIL [Concomitant]
  5. TOLBUTAMIDE [Concomitant]
  6. OMEPRAZOLE [Concomitant]
  7. PROPRANOLOL [Concomitant]
  8. MULTI-VITAMIN [Concomitant]

REACTIONS (4)
  - APHASIA [None]
  - CEREBRAL HAEMORRHAGE [None]
  - COGNITIVE DISORDER [None]
  - COMMUNICATION DISORDER [None]
